FAERS Safety Report 26081407 (Version 2)
Quarter: 2025Q4

REPORT INFORMATION
  Report Type: Spontaneous
  Country: JP (occurrence: JP)
  Receive Date: 20251124
  Receipt Date: 20251222
  Transmission Date: 20260117
  Serious: Yes (Death)
  Sender: ROCHE
  Company Number: JP-CHUGAI-2025037020

PATIENT
  Age: 9 Decade
  Sex: Male

DRUGS (1)
  1. HEMLIBRA [Suspect]
     Active Substance: EMICIZUMAB-KXWH
     Indication: Haemophilia A without inhibitors
     Dosage: 150 MILLIGRAM, ONCE/2WEEKS
     Route: 058

REACTIONS (1)
  - Death [Fatal]

NARRATIVE: CASE EVENT DATE: 20251111
